FAERS Safety Report 6083317-7 (Version None)
Quarter: 2009Q1

REPORT INFORMATION
  Report Type: 
  Country: None (occurrence: None)
  Receive Date: 20090213
  Receipt Date: 20090213
  Transmission Date: 20090719
  Serious: Yes (Hospitalization)
  Sender: FDA-Public Use
  Company Number: None

PATIENT
  Age: 64 Year
  Sex: Female
  Weight: 100 kg

DRUGS (14)
  1. ACTOS [Suspect]
     Indication: TYPE 2 DIABETES MELLITUS
     Dosage: 30 MG DAILY PO
     Route: 048
  2. ASPIRIN [Concomitant]
  3. ATENOLOL [Concomitant]
  4. PRAVACHOL [Concomitant]
  5. CLONIDINE [Concomitant]
  6. DIOVAN [Concomitant]
  7. FOSINOPRIL [Concomitant]
  8. XALATAN [Concomitant]
  9. FRAGMIN [Concomitant]
  10. LASIX [Concomitant]
  11. CLONIDINE [Concomitant]
  12. LISINOPRIL [Concomitant]
  13. PRAVACHOL [Concomitant]
  14. TIMOLOL [Concomitant]

REACTIONS (5)
  - CARDIAC FAILURE CHRONIC [None]
  - DYSPNOEA [None]
  - FLUID RETENTION [None]
  - MUSCULAR WEAKNESS [None]
  - OEDEMA PERIPHERAL [None]
